FAERS Safety Report 6221894-3 (Version None)
Quarter: 2009Q2

REPORT INFORMATION
  Report Type: 
  Country: None (occurrence: None)
  Receive Date: 20090608
  Receipt Date: 20090608
  Transmission Date: 20091009
  Serious: Yes (Other)
  Sender: FDA-Public Use
  Company Number: None

PATIENT
  Sex: Female
  Weight: 77.1115 kg

DRUGS (1)
  1. TOPIRAMATE [Suspect]
     Indication: CONVULSION
     Dosage: 100 MG GAM, 200 MG QHS ORAL
     Route: 048
     Dates: start: 20090603

REACTIONS (2)
  - CHEST DISCOMFORT [None]
  - DIZZINESS [None]
